FAERS Safety Report 26200153 (Version 1)
Quarter: 2025Q4

REPORT INFORMATION
  Report Type: Spontaneous
  Country: EU (occurrence: EU)
  Receive Date: 20251225
  Receipt Date: 20251225
  Transmission Date: 20260117
  Serious: Yes (Other)
  Sender: BAUSCH AND LOMB
  Company Number: EU-BAUSCH-BH-2025-022824

PATIENT
  Age: 28 Year
  Sex: Female

DRUGS (4)
  1. AZATHIOPRINE [Suspect]
     Active Substance: AZATHIOPRINE
     Indication: Colitis ulcerative
     Route: 065
  2. AZATHIOPRINE [Suspect]
     Active Substance: AZATHIOPRINE
     Dosage: DOSE RE-INTRODUCED
     Route: 065
  3. REMICADE [Suspect]
     Active Substance: INFLIXIMAB
     Indication: Colitis ulcerative
     Route: 041
     Dates: start: 201704, end: 202003
  4. REMICADE [Suspect]
     Active Substance: INFLIXIMAB
     Dosage: RE-INUCTION
     Route: 041
     Dates: start: 202010

REACTIONS (5)
  - Anaphylactic reaction [Unknown]
  - HELLP syndrome [Unknown]
  - Exposure during pregnancy [Recovered/Resolved]
  - Premature labour [Recovered/Resolved]
  - COVID-19 [Unknown]

NARRATIVE: CASE EVENT DATE: 20190101
